FAERS Safety Report 8533850-0 (Version None)
Quarter: 2012Q3

REPORT INFORMATION
  Report Type: 
  Country: None (occurrence: None)
  Receive Date: 20120724
  Receipt Date: 20120709
  Transmission Date: 20120928
  Serious: Yes (Life-Threatening)
  Sender: FDA-Public Use
  Company Number: FR-WATSON-2012-11973

PATIENT
  Sex: Female

DRUGS (10)
  1. SPIRONOLACTONE [Suspect]
     Indication: PRODUCT USED FOR UNKNOWN INDICATION
     Dosage: 50 MG, DAILY
     Route: 048
     Dates: end: 20120618
  2. LASIX [Suspect]
     Indication: PRODUCT USED FOR UNKNOWN INDICATION
     Dosage: 40 MG, DAILY
     Route: 048
  3. VANCOMYCIN HYDROCHLORIDE [Suspect]
     Indication: DEVICE RELATED INFECTION
     Dosage: 1 G, TID
     Route: 042
     Dates: start: 20120518, end: 20120618
  4. LOSARTAN POTASSIUM [Suspect]
     Indication: HYPERTENSION
     Dosage: 100 MG, DAILY
     Route: 048
     Dates: end: 20120618
  5. CEFTRIAXONE AGUETTANT [Concomitant]
     Indication: DEVICE RELATED INFECTION
     Dosage: UNK
     Route: 042
  6. EUPRESSYL                          /00631801/ [Concomitant]
     Indication: HYPERTENSION
     Dosage: 30 MG, DAILY
     Route: 048
  7. GENTAMICIN [Suspect]
     Indication: DEVICE RELATED INFECTION
     Dosage: 320 MG, DAILY
     Route: 048
     Dates: start: 20120518, end: 20120618
  8. TRAMADOL HCL [Concomitant]
     Indication: PRODUCT USED FOR UNKNOWN INDICATION
     Dosage: 100 MG, BID
     Route: 048
     Dates: end: 20020318
  9. KETOPROFEN [Suspect]
     Indication: PRODUCT USED FOR UNKNOWN INDICATION
     Dosage: 1 DF, BID
     Route: 048
     Dates: end: 20120618
  10. SITAGLIPTIN PHOSPHATE [Concomitant]
     Indication: TYPE 2 DIABETES MELLITUS
     Dosage: 100 MG, DAILY
     Route: 048
     Dates: end: 20120618

REACTIONS (1)
  - RENAL FAILURE ACUTE [None]
